FAERS Safety Report 8063193-3 (Version None)
Quarter: 2012Q1

REPORT INFORMATION
  Report Type: 
  Country: None (occurrence: None)
  Receive Date: 20120123
  Receipt Date: 20120111
  Transmission Date: 20120608
  Serious: Yes (Other)
  Sender: FDA-Public Use
  Company Number: PHHY2012JP002735

PATIENT
  Sex: Male

DRUGS (9)
  1. FUROSEMIDE [Concomitant]
     Indication: HYPERTENSION
     Dosage: 40 MG
     Dates: start: 20101229
  2. CRESTOR [Concomitant]
     Route: 048
  3. EPLERENONE [Concomitant]
     Indication: HYPERTENSION
     Route: 048
     Dates: start: 20100309
  4. CONIEL [Concomitant]
     Indication: HYPERTENSION
     Route: 048
     Dates: start: 20100208
  5. ALISKIREN [Suspect]
     Indication: HYPERTENSION
     Dates: start: 20100209
  6. WARFARIN SODIUM [Concomitant]
     Dosage: 2 MG
     Route: 048
  7. FUROSEMIDE [Concomitant]
     Dosage: 80 MG
     Route: 048
  8. CANDESARTAN CILEXETIL [Concomitant]
     Indication: HYPERTENSION
     Route: 048
  9. WARFARIN SODIUM [Concomitant]
     Dosage: 1.5 MG
     Route: 048

REACTIONS (3)
  - LUNG CANCER METASTATIC [None]
  - DECREASED APPETITE [None]
  - MALIGNANT PLEURAL EFFUSION [None]
